FAERS Safety Report 16738831 (Version 1)
Quarter: 2019Q3

REPORT INFORMATION
  Report Type: Spontaneous
  Country: US (occurrence: US)
  Receive Date: 20190826
  Receipt Date: 20190826
  Transmission Date: 20191005
  Serious: Yes (Other)
  Sender: FDA-Public Use
  Company Number: US-ROCHE-2381322

PATIENT
  Sex: Male

DRUGS (3)
  1. TECENTRIQ [Suspect]
     Active Substance: ATEZOLIZUMAB
     Indication: SMALL CELL LUNG CANCER EXTENSIVE STAGE
     Dosage: LAST DOSE OF ATEZOLIZUMAB: 01/AUG/2019
     Route: 042
  2. ETOPOSIDE. [Concomitant]
     Active Substance: ETOPOSIDE
     Indication: SMALL CELL LUNG CANCER EXTENSIVE STAGE
     Dosage: STARTED WITH 1ST CYCLE OF TECENTRIQ FOR 4 CYCLES ;ONGOING: NO
     Route: 042
  3. CARBOPLATIN. [Concomitant]
     Active Substance: CARBOPLATIN
     Indication: SMALL CELL LUNG CANCER EXTENSIVE STAGE
     Dosage: STARTED WITH 1ST CYCLE OF TECENTRIQ FOR 4 CYCLES ;ONGOING: NO?TARGET AUC 5 MG/ML/MINUTE
     Route: 042

REACTIONS (2)
  - Vision blurred [Unknown]
  - Optic neuritis [Unknown]

NARRATIVE: CASE EVENT DATE: 20190809
